FAERS Safety Report 14121209 (Version 1)
Quarter: 2017Q4

REPORT INFORMATION
  Report Type: Other
  Country: PT (occurrence: PT)
  Receive Date: 20171024
  Receipt Date: 20171024
  Transmission Date: 20180321
  Serious: Yes (Other)
  Sender: FDA-Public Use
  Company Number: PT-CELLTRION HEALTHCARE JAPAN K.K.-2017PT014272

PATIENT

DRUGS (5)
  1. MODURETIC 5-50 [Concomitant]
     Active Substance: AMILORIDE HYDROCHLORIDE\HYDROCHLOROTHIAZIDE
  2. INFLECTRA [Suspect]
     Active Substance: INFLIXIMAB-DYYB
     Indication: CROHN^S DISEASE
     Dosage: 350 MG, CYCLIC (10 ML/H  FOR 15 MIN, 20 ML/H FOR A FURTHER 15 MIN, 40 ML/H)
     Route: 042
     Dates: start: 20170814, end: 20170814
  3. LEPICORTINOLO                      /00016201/ [Concomitant]
     Active Substance: PREDNISOLONE
  4. SALAZOPIRINA EN [Concomitant]
     Active Substance: SULFASALAZINE
  5. NEBILET COMP [Concomitant]

REACTIONS (8)
  - Tachycardia [Recovered/Resolved]
  - Hyperhidrosis [Recovered/Resolved]
  - Pruritus [Recovered/Resolved]
  - Feeling abnormal [Recovered/Resolved]
  - Pallor [Recovered/Resolved]
  - Papule [Recovered/Resolved]
  - Malaise [Recovered/Resolved]
  - Hypertension [Recovered/Resolved]

NARRATIVE: CASE EVENT DATE: 20170814
